FAERS Safety Report 9805739 (Version 2)
Quarter: 2014Q2

REPORT INFORMATION
  Report Type: Report from Study
  Country: US (occurrence: US)
  Receive Date: 20140109
  Receipt Date: 20140429
  Transmission Date: 20141212
  Serious: Yes (Death, Hospitalization)
  Sender: FDA-Public Use
  Company Number: PHEH2014US000626

PATIENT
  Age: 80 Year
  Sex: Male

DRUGS (1)
  1. TASIGNA [Suspect]
     Indication: CHRONIC MYELOID LEUKAEMIA
     Dosage: 200 MG, BID
     Route: 048
     Dates: start: 20120618

REACTIONS (4)
  - Death [Fatal]
  - Dyspnoea [Recovering/Resolving]
  - Nausea [Recovering/Resolving]
  - Inappropriate schedule of drug administration [Unknown]
